FAERS Safety Report 5570578-3 (Version None)
Quarter: 2007Q4

REPORT INFORMATION
  Report Type: 
  Country: None (occurrence: None)
  Receive Date: 20071221
  Receipt Date: 20071212
  Transmission Date: 20080405
  Serious: Yes (Hospitalization)
  Sender: FDA-Public Use
  Company Number: JP-BRISTOL-MYERS SQUIBB COMPANY-14020127

PATIENT
  Age: 63 Year
  Sex: Male

DRUGS (6)
  1. CYCLOPHOSPHAMIDE [Suspect]
     Indication: NON-HODGKIN'S LYMPHOMA
     Route: 065
     Dates: start: 20020701, end: 20020904
  2. VINCRISTINE SULFATE [Suspect]
     Indication: NON-HODGKIN'S LYMPHOMA
     Route: 065
     Dates: start: 20020701, end: 20020904
  3. DOXORUBICIN HCL [Suspect]
     Indication: NON-HODGKIN'S LYMPHOMA
     Route: 065
     Dates: start: 20020701, end: 20020904
  4. PIRARUBICIN HCL [Suspect]
     Indication: NON-HODGKIN'S LYMPHOMA
     Route: 065
     Dates: start: 20020701, end: 20020904
  5. PREDONINE [Suspect]
     Dates: start: 20020701, end: 20020904
  6. RADIATION THERAPY [Suspect]
     Dosage: 40.5 GYRATION
     Dates: start: 20021001

REACTIONS (1)
  - MESANGIOPROLIFERATIVE GLOMERULONEPHRITIS [None]
